FAERS Safety Report 18358111 (Version 1)
Quarter: 2020Q4

REPORT INFORMATION
  Report Type: Spontaneous
  Country: US (occurrence: US)
  Receive Date: 20201008
  Receipt Date: 20201008
  Transmission Date: 20210114
  Serious: No
  Sender: FDA-Public Use
  Company Number: US-TERSERA THERAPEUTICS LLC-2020TRS001547

PATIENT

DRUGS (1)
  1. VARUBI [Suspect]
     Active Substance: ROLAPITANT
     Indication: COLON CANCER
     Dosage: 180 MG (TAKE 2 TABLETS BY MOUTH 1-2 HOURS PRIOR TO CHEMOTHERAPY)
     Route: 048
     Dates: start: 20200526

REACTIONS (1)
  - Nausea [Recovering/Resolving]

NARRATIVE: CASE EVENT DATE: 2020
